FAERS Safety Report 8772045 (Version 2)
Quarter: 2013Q4

REPORT INFORMATION
  Report Type: Spontaneous
  Country: US (occurrence: US)
  Receive Date: 20120906
  Receipt Date: 20131031
  Transmission Date: 20140711
  Serious: No
  Sender: FDA-Public Use
  Company Number: US-009507513-2012SP034368

PATIENT
  Sex: Male

DRUGS (1)
  1. COPPERTONE SPORT LOTION SPF 50 [Suspect]
     Indication: PRODUCT USED FOR UNKNOWN INDICATION
     Dosage: 2 DF, UNKNOWN
     Route: 061
     Dates: start: 201204

REACTIONS (3)
  - Sunburn [Unknown]
  - Chills [Unknown]
  - Unevaluable event [Not Recovered/Not Resolved]
